FAERS Safety Report 13576244 (Version 1)
Quarter: 2017Q2

REPORT INFORMATION
  Report Type: Spontaneous
  Country: US (occurrence: US)
  Receive Date: 20170524
  Receipt Date: 20170524
  Transmission Date: 20170830
  Serious: Yes (Hospitalization, Other)
  Sender: FDA-Public Use
  Company Number: US-ZYDUS-015261

PATIENT
  Age: 53 Year
  Sex: Female

DRUGS (2)
  1. PREDNISONE. [Concomitant]
     Active Substance: PREDNISONE
     Indication: PRODUCT USED FOR UNKNOWN INDICATION
     Route: 065
  2. AMIODARONE [Suspect]
     Active Substance: AMIODARONE
     Indication: PRODUCT USED FOR UNKNOWN INDICATION
     Route: 065

REACTIONS (11)
  - C-reactive protein increased [Unknown]
  - Pyrexia [Unknown]
  - Blood thyroid stimulating hormone decreased [Unknown]
  - Hyperthyroidism [Unknown]
  - Tri-iodothyronine free increased [Unknown]
  - Ventricular extrasystoles [Unknown]
  - Sinus tachycardia [Unknown]
  - Chest pain [Unknown]
  - Thyroiditis [Unknown]
  - Red blood cell sedimentation rate increased [Unknown]
  - Thyroxine free increased [Unknown]
